FAERS Safety Report 11128003 (Version 1)
Quarter: 2015Q2

REPORT INFORMATION
  Report Type: Spontaneous
  Country: BR (occurrence: BR)
  Receive Date: 20150521
  Receipt Date: 20150521
  Transmission Date: 20150821
  Serious: Yes (Other)
  Sender: FDA-Public Use
  Company Number: BR-PFIZER INC-2015166662

PATIENT
  Age: 54 Year
  Sex: Male
  Weight: 60 kg

DRUGS (1)
  1. VIAGRA [Suspect]
     Active Substance: SILDENAFIL CITRATE
     Dosage: UNK
     Route: 048
     Dates: end: 2013

REACTIONS (8)
  - Diabetes mellitus [Unknown]
  - Cardiac disorder [Unknown]
  - Drug ineffective [Unknown]
  - Hypertension [Unknown]
  - Blood cholesterol increased [Unknown]
  - Eye haemorrhage [Unknown]
  - Blood triglycerides increased [Unknown]
  - Visual impairment [Unknown]

NARRATIVE: CASE EVENT DATE: 2013
